FAERS Safety Report 11742679 (Version 1)
Quarter: 2015Q4

REPORT INFORMATION
  Report Type: Spontaneous
  Country: US (occurrence: None)
  Receive Date: 20151113
  Receipt Date: 20151113
  Transmission Date: 20160304
  Serious: No
  Sender: FDA-Public Use
  Company Number: None

PATIENT
  Age: 65 Year
  Sex: Male

DRUGS (1)
  1. CIMZIA [Suspect]
     Active Substance: CERTOLIZUMAB PEGOL
     Indication: CROHN^S DISEASE
     Dosage: AT WEEKS 0, 2, 4
     Route: 058
     Dates: start: 20151002, end: 20151112

REACTIONS (1)
  - Injection site rash [None]

NARRATIVE: CASE EVENT DATE: 20151109
